FAERS Safety Report 9997227 (Version 1)
Quarter: 2014Q1

REPORT INFORMATION
  Report Type: Spontaneous
  Country: IT (occurrence: IT)
  Receive Date: 20140311
  Receipt Date: 20140311
  Transmission Date: 20141002
  Serious: Yes (Other)
  Sender: FDA-Public Use
  Company Number: IT-TEVA-465590ISR

PATIENT
  Age: 39 Year
  Sex: Female

DRUGS (5)
  1. CARBOLITHIUM [Suspect]
     Indication: INTENTIONAL SELF-INJURY
     Dosage: 40 DOSAGE FORMS DAILY;
     Route: 048
     Dates: start: 20140116, end: 20140116
  2. TRIAZOLAM [Suspect]
     Indication: INTENTIONAL SELF-INJURY
     Route: 048
     Dates: start: 20140116, end: 20140116
  3. DELORAZEPAM [Suspect]
     Indication: INTENTIONAL SELF-INJURY
     Route: 048
     Dates: start: 20140116, end: 20140116
  4. TOPAMAX [Suspect]
     Indication: INTENTIONAL SELF-INJURY
     Dosage: 120 DOSAGE FORMS DAILY;
     Route: 048
     Dates: start: 20140116, end: 20140116
  5. TALOFEN [Suspect]
     Indication: INTENTIONAL SELF-INJURY
     Route: 048
     Dates: start: 20140116, end: 20140116

REACTIONS (4)
  - Coma [Unknown]
  - Hypotension [Unknown]
  - Drug abuse [Unknown]
  - Intentional self-injury [Unknown]
